FAERS Safety Report 19259844 (Version 1)
Quarter: 2021Q2

REPORT INFORMATION
  Report Type: Report from Study
  Country: US (occurrence: US)
  Receive Date: 20210514
  Receipt Date: 20210514
  Transmission Date: 20210717
  Serious: Yes (Other)
  Sender: FDA-Public Use
  Company Number: US-EMD SERONO-9237257

PATIENT
  Age: 49 Year
  Sex: Male

DRUGS (1)
  1. REBIF [Suspect]
     Active Substance: INTERFERON BETA-1A
     Indication: PRODUCT USED FOR UNKNOWN INDICATION
     Route: 058
     Dates: start: 20161226, end: 20210504

REACTIONS (4)
  - Dysarthria [Recovering/Resolving]
  - Optic neuritis [Recovered/Resolved]
  - Influenza like illness [Unknown]
  - Fatigue [Unknown]

NARRATIVE: CASE EVENT DATE: 202011
